FAERS Safety Report 16803595 (Version 1)
Quarter: 2019Q3

REPORT INFORMATION
  Report Type: Spontaneous
  Country: ES (occurrence: ES)
  Receive Date: 20190913
  Receipt Date: 20190913
  Transmission Date: 20191005
  Serious: Yes (Other)
  Sender: FDA-Public Use
  Company Number: ES-AUROBINDO-AUR-APL-2019-059631

PATIENT
  Age: 25 Year
  Sex: Female

DRUGS (1)
  1. ARIPIPRAZOL [Suspect]
     Active Substance: ARIPIPRAZOLE
     Indication: SCHIZOPHRENIA
     Dosage: 30 MILLIGRAM, ONCE A DAY
     Route: 065

REACTIONS (3)
  - Intentional self-injury [Unknown]
  - Condition aggravated [Unknown]
  - Hallucination, auditory [Unknown]
